FAERS Safety Report 8083081-6 (Version None)
Quarter: 2012Q1

REPORT INFORMATION
  Report Type: 
  Country: None (occurrence: None)
  Receive Date: 20120127
  Receipt Date: 20110301
  Transmission Date: 20120608
  Serious: No
  Sender: FDA-Public Use
  Company Number: US-ABBOTT-11P-163-0708849-00

PATIENT
  Sex: Male
  Weight: 145.28 kg

DRUGS (5)
  1. AVANOS CREAM [Concomitant]
     Indication: PSORIATIC ARTHROPATHY
  2. MULTI-VITAMINS [Concomitant]
     Indication: VITAMIN SUPPLEMENTATION
  3. HUMIRA [Suspect]
     Indication: PSORIATIC ARTHROPATHY
     Dates: start: 20101101
  4. HUMIRA [Suspect]
     Indication: PSORIASIS
  5. FISH OIL [Concomitant]
     Indication: VITAMIN SUPPLEMENTATION

REACTIONS (3)
  - PARAESTHESIA [None]
  - OPTIC NEURITIS [None]
  - DIZZINESS [None]
